FAERS Safety Report 12110166 (Version 9)
Quarter: 2016Q2

REPORT INFORMATION
  Report Type: Report from Study
  Country: US (occurrence: US)
  Receive Date: 20160224
  Receipt Date: 20160525
  Transmission Date: 20160815
  Serious: Yes (Hospitalization, Other)
  Sender: FDA-Public Use
  Company Number: US-GILEAD-2016-0198680

PATIENT
  Age: 45 Year
  Sex: Male

DRUGS (3)
  1. ADCIRCA [Concomitant]
     Active Substance: TADALAFIL
  2. REMODULIN [Concomitant]
     Active Substance: TREPROSTINIL
  3. AMBRISENTAN [Suspect]
     Active Substance: AMBRISENTAN
     Indication: PRODUCT USED FOR UNKNOWN INDICATION
     Dosage: 10 MG, QD
     Route: 065
     Dates: start: 20141015

REACTIONS (12)
  - Pericarditis [Unknown]
  - Device related infection [Unknown]
  - Oropharyngeal pain [Unknown]
  - Thrombosis in device [Unknown]
  - Septic shock [Unknown]
  - Endocarditis [Unknown]
  - Cardiac infection [Unknown]
  - Pyrexia [Unknown]
  - Sepsis [Unknown]
  - Central venous catheterisation [Not Recovered/Not Resolved]
  - Device occlusion [Unknown]
  - Unevaluable event [Unknown]

NARRATIVE: CASE EVENT DATE: 20160210
